FAERS Safety Report 9340198 (Version 2)
Quarter: 2013Q3

REPORT INFORMATION
  Report Type: Spontaneous
  Country: US (occurrence: US)
  Receive Date: 20130610
  Receipt Date: 20130916
  Transmission Date: 20140515
  Serious: Yes (Hospitalization, Other)
  Sender: FDA-Public Use
  Company Number: US-ASTELLAS-2013US004319

PATIENT
  Age: 54 Year
  Sex: Male

DRUGS (2)
  1. XTANDI [Suspect]
     Indication: PRODUCT USED FOR UNKNOWN INDICATION
     Dosage: 160 MG, UNKNOWN/D
     Route: 048
     Dates: start: 201302, end: 201304
  2. XTANDI [Suspect]
     Dosage: 120 MG, UNKNOWN/D
     Route: 048
     Dates: start: 201304

REACTIONS (3)
  - Complication of device insertion [Unknown]
  - Haemorrhage [Unknown]
  - Blood urine present [Unknown]
